FAERS Safety Report 9499543 (Version 1)
Quarter: 2013Q3

REPORT INFORMATION
  Report Type: Report from Study
  Country: US (occurrence: US)
  Receive Date: 20130905
  Receipt Date: 20130905
  Transmission Date: 20140515
  Serious: Yes (Hospitalization)
  Sender: FDA-Public Use
  Company Number: US-BRISTOL-MYERS SQUIBB COMPANY-19234327

PATIENT
  Age: 17 Year
  Sex: Male
  Weight: 153.3 kg

DRUGS (7)
  1. IPILIMUMAB [Suspect]
     Indication: RENAL CELL CARCINOMA
     Dosage: LAST DOSE:2AUG13 (TOTAL DOSE: 793 MG)
     Route: 042
     Dates: start: 20130802
  2. FLEXERIL [Concomitant]
  3. HYDROCHLOROTHIAZIDE [Concomitant]
  4. LEVAQUIN [Concomitant]
  5. LISINOPRIL [Concomitant]
  6. OXYCODONE [Concomitant]
  7. TYLENOL + CODEINE [Concomitant]

REACTIONS (2)
  - Blood creatine phosphokinase increased [Not Recovered/Not Resolved]
  - Laryngeal haemorrhage [Not Recovered/Not Resolved]
